FAERS Safety Report 6545746-4 (Version None)
Quarter: 2010Q1

REPORT INFORMATION
  Report Type: 
  Country: None (occurrence: None)
  Receive Date: 20100119
  Receipt Date: 20100104
  Transmission Date: 20100710
  Serious: Yes (Other)
  Sender: FDA-Public Use
  Company Number: 2009AC000074

PATIENT
  Age: 84 Year
  Sex: Female

DRUGS (9)
  1. DIGOXIN [Suspect]
     Dosage: 0.125 MG;QD;PO
     Route: 048
     Dates: start: 20050101, end: 20080101
  2. WARFARIN SODIUM [Concomitant]
  3. FUROSEMIDE [Concomitant]
  4. PREMARIN [Concomitant]
  5. NITROGLYCERIN [Concomitant]
  6. DILTIIZEM [Concomitant]
  7. DILTIAZEM [Concomitant]
  8. AZITHROMYCIN [Concomitant]
  9. CIPRO [Concomitant]

REACTIONS (16)
  - ANGINA PECTORIS [None]
  - ATRIAL FIBRILLATION [None]
  - CARDIAC FAILURE CONGESTIVE [None]
  - CARDIAC VALVE DISEASE [None]
  - CHEST PAIN [None]
  - DEHYDRATION [None]
  - DIARRHOEA [None]
  - DIZZINESS [None]
  - ECONOMIC PROBLEM [None]
  - HYPERTENSION [None]
  - HYPOKALAEMIA [None]
  - INJURY [None]
  - MALAISE [None]
  - NAUSEA [None]
  - PALPITATIONS [None]
  - VOMITING [None]
